FAERS Safety Report 11113055 (Version 2)
Quarter: 2015Q2

REPORT INFORMATION
  Report Type: Spontaneous
  Country: DE (occurrence: DE)
  Receive Date: 20150514
  Receipt Date: 20150519
  Transmission Date: 20150821
  Serious: Yes (Hospitalization, Congenital Anomaly, Other)
  Sender: FDA-Public Use
  Company Number: DE-PFIZER INC-2015158157

PATIENT
  Age: 1 Day
  Sex: Male
  Weight: 3.36 kg

DRUGS (4)
  1. VENLAFAXINE HCL [Suspect]
     Active Substance: VENLAFAXINE HYDROCHLORIDE
     Indication: DEPRESSION
     Dosage: 300 MG, 1X/DAY, 0 - 39.1 GESTATIONAL WEEK, 1ST TRIMESTER
     Route: 064
     Dates: start: 20131025, end: 20140726
  2. CYTOTEC [Concomitant]
     Active Substance: MISOPROSTOL
     Indication: LABOUR INDUCTION
     Dosage: UNK, 38.6 GESTATIONAL WEEK, 3RD TRIMESTER
     Route: 064
     Dates: start: 20140724, end: 20140724
  3. BUSCOPAN [Concomitant]
     Active Substance: BUTYLSCOPOLAMINE BROMIDE
     Indication: LABOUR PAIN
     Dosage: UNK, 39.1 GESTATIONAL WEEK, 3RD TRIMESTER
     Route: 064
     Dates: start: 20140726, end: 20140726
  4. PROPRANOLOL [Concomitant]
     Active Substance: PROPRANOLOL\PROPRANOLOL HYDROCHLORIDE
     Dosage: 10 MG, 1X/DAY, 0 - 39.1 GESTATIONAL WEEK, 1 ST TRIMESTER
     Route: 064
     Dates: start: 20131025, end: 20140726

REACTIONS (10)
  - Hypertelorism of orbit [Not Recovered/Not Resolved]
  - Trismus [Unknown]
  - Neonatal hypoxia [Unknown]
  - Maternal exposure during pregnancy [Not Recovered/Not Resolved]
  - Basal ganglia haemorrhage [Unknown]
  - Seizure [Unknown]
  - Hypotonia neonatal [Unknown]
  - Visual impairment [Not Recovered/Not Resolved]
  - Bradycardia neonatal [Unknown]
  - Dysphagia [Unknown]

NARRATIVE: CASE EVENT DATE: 2014
